FAERS Safety Report 9205843 (Version 2)
Quarter: 2013Q2

REPORT INFORMATION
  Report Type: Spontaneous
  Country: US (occurrence: US)
  Receive Date: 20130403
  Receipt Date: 20130510
  Transmission Date: 20140414
  Serious: Yes (Hospitalization)
  Sender: FDA-Public Use
  Company Number: US-BAYER-2013-041518

PATIENT
  Age: 46 Year
  Sex: Female
  Weight: 61.22 kg

DRUGS (11)
  1. BETASERON [Suspect]
     Dosage: 0.3 MG, UNK
  2. AMPYRA [Suspect]
     Dosage: 10 MG, BID
     Route: 048
  3. CYMBALTA [Concomitant]
     Dosage: 20 MG, UNK
  4. VITAMIN D [Concomitant]
     Dosage: 1000 U, UNK
  5. DITROPAN XL [Concomitant]
     Dosage: 5 MG, UNK
  6. ATENOLOL [Concomitant]
     Dosage: 25 MG, UNK
  7. PROVIGIL [Concomitant]
     Dosage: 100 MG, UNK
  8. MULTIVITAMINS [Concomitant]
  9. FISH OIL [Concomitant]
  10. BACLOFEN [Concomitant]
     Dosage: 10 MG, UNK
  11. TYSABRI [Concomitant]

REACTIONS (2)
  - Injection site infection [None]
  - Pyrexia [None]
